FAERS Safety Report 23600292 (Version 2)
Quarter: 2024Q1

REPORT INFORMATION
  Report Type: Spontaneous
  Country: US (occurrence: US)
  Receive Date: 20240306
  Receipt Date: 20240308
  Transmission Date: 20240410
  Serious: No
  Sender: FDA-Public Use
  Company Number: US-TORRENT-00013446

PATIENT
  Sex: Male

DRUGS (1)
  1. TADALAFIL [Suspect]
     Active Substance: TADALAFIL
     Indication: Pollakiuria
     Dosage: SMALLER PILL DESCRIPTION: ?COLOR: YELLOW?PILL IMPRINT: B1/5?SHAPE: EGG
     Route: 065

REACTIONS (5)
  - Drug ineffective [Unknown]
  - Treatment noncompliance [Unknown]
  - Pollakiuria [Unknown]
  - Product commingling [Unknown]
  - Wrong product administered [Unknown]
